FAERS Safety Report 8501669-2 (Version None)
Quarter: 2012Q3

REPORT INFORMATION
  Report Type: 
  Country: None (occurrence: None)
  Receive Date: 20120711
  Receipt Date: 20120703
  Transmission Date: 20120928
  Serious: Yes (Hospitalization)
  Sender: FDA-Public Use
  Company Number: US-BIOGENIDEC-2010BI044909

PATIENT
  Age: 77 Year
  Sex: Female

DRUGS (2)
  1. AVONEX [Suspect]
     Indication: MULTIPLE SCLEROSIS
     Route: 030
     Dates: start: 19990405, end: 20030101
  2. AVONEX [Suspect]
     Route: 030
     Dates: start: 20030101

REACTIONS (22)
  - BACK INJURY [None]
  - GASTROINTESTINAL INJURY [None]
  - RENAL IMPAIRMENT [None]
  - WRIST FRACTURE [None]
  - PROCTALGIA [None]
  - SKIN ULCER [None]
  - LOSS OF CONTROL OF LEGS [None]
  - CONFUSIONAL STATE [None]
  - FALL [None]
  - LOSS OF CONSCIOUSNESS [None]
  - WOUND INFECTION [None]
  - GAIT DISTURBANCE [None]
  - FACE INJURY [None]
  - INJECTION SITE PAIN [None]
  - ADHESION [None]
  - ERYTHEMA [None]
  - HEMIPARESIS [None]
  - ASTHENIA [None]
  - EPISTAXIS [None]
  - LIMB INJURY [None]
  - PERIORBITAL HAEMATOMA [None]
  - HAND FRACTURE [None]
